FAERS Safety Report 24376762 (Version 1)
Quarter: 2024Q3

REPORT INFORMATION
  Report Type: Spontaneous
  Country: BE (occurrence: BE)
  Receive Date: 20240930
  Receipt Date: 20240930
  Transmission Date: 20241016
  Serious: Yes (Other)
  Sender: JOHNSON AND JOHNSON
  Company Number: BE-JNJFOC-20240957395

PATIENT

DRUGS (1)
  1. TALVEY [Suspect]
     Active Substance: TALQUETAMAB-TGVS
     Indication: Plasma cell myeloma
     Route: 065

REACTIONS (8)
  - Hypogammaglobulinaemia [Unknown]
  - Infection susceptibility increased [Unknown]
  - Injection site erythema [Unknown]
  - Nasopharyngitis [Unknown]
  - Cough [Unknown]
  - Nail dystrophy [Unknown]
  - Skin exfoliation [Recovering/Resolving]
  - Dysgeusia [Unknown]
